FAERS Safety Report 8266122-2 (Version None)
Quarter: 2012Q2

REPORT INFORMATION
  Report Type: 
  Country: None (occurrence: None)
  Receive Date: 20120406
  Receipt Date: 20120327
  Transmission Date: 20120825
  Serious: No
  Sender: FDA-Public Use
  Company Number: US-B.I. PHARMACEUTICALS,INC./RIDGEFIELD-2011-BP-01443BP

PATIENT
  Sex: Female
  Weight: 100.7 kg

DRUGS (14)
  1. LOSARTAN POTASSIUM [Concomitant]
     Indication: RHINITIS
     Dosage: 100 MG
     Route: 048
     Dates: start: 20120301
  2. FISH OIL [Concomitant]
     Indication: SUPPLEMENTATION THERAPY
  3. ESTRACE [Concomitant]
     Indication: HORMONE REPLACEMENT THERAPY
     Dosage: 2 MG
     Dates: end: 20110101
  4. LORAZEPAM [Concomitant]
  5. ESTRADIOL [Concomitant]
     Indication: HORMONE REPLACEMENT THERAPY
     Dosage: 2 MG
     Route: 048
     Dates: start: 19980101
  6. MULTI-VITAMIN [Concomitant]
     Indication: SUPPLEMENTATION THERAPY
  7. DEPO-MEDROL [Concomitant]
     Indication: BACK PAIN
  8. HYDROCHLOROTHIAZIDE [Concomitant]
     Dosage: 12.5 MG
  9. MICARDIS [Suspect]
     Indication: HYPERTENSION
     Dosage: 40 MG
     Route: 048
     Dates: start: 20100404
  10. ASTELIN [Concomitant]
     Indication: HYPERSENSITIVITY
     Dosage: 8 SPRAYS
     Route: 013
     Dates: start: 19900101
  11. VITAMIN D [Concomitant]
     Indication: SUPPLEMENTATION THERAPY
  12. VITAMIN B-12 [Concomitant]
     Indication: SUPPLEMENTATION THERAPY
  13. CALCIUM CARBONATE [Concomitant]
     Indication: SUPPLEMENTATION THERAPY
  14. ASTELIN [Concomitant]
     Indication: RHINITIS

REACTIONS (13)
  - OEDEMA PERIPHERAL [None]
  - NASOPHARYNGITIS [None]
  - RHINORRHOEA [None]
  - PRURITUS GENERALISED [None]
  - ASTHENIA [None]
  - VERTIGO [None]
  - UPPER RESPIRATORY TRACT INFECTION [None]
  - URTICARIA [None]
  - PRURITUS [None]
  - WEIGHT DECREASED [None]
  - DIZZINESS [None]
  - FATIGUE [None]
  - DYSPNOEA [None]
